FAERS Safety Report 6486394-4 (Version None)
Quarter: 2009Q4

REPORT INFORMATION
  Report Type: 
  Country: None (occurrence: None)
  Receive Date: 20091210
  Receipt Date: 20091201
  Transmission Date: 20100525
  Serious: Yes (Hospitalization)
  Sender: FDA-Public Use
  Company Number: US-BIOGENIDEC-2009BI037844

PATIENT
  Age: 32 Year
  Sex: Female

DRUGS (1)
  1. TYSABRI [Suspect]
     Indication: MULTIPLE SCLEROSIS
     Route: 042
     Dates: start: 20070509

REACTIONS (5)
  - ANAL FISTULA [None]
  - CYSTITIS [None]
  - GAIT DISTURBANCE [None]
  - PROCTALGIA [None]
  - RECTAL ABSCESS [None]
